FAERS Safety Report 6635935-2 (Version None)
Quarter: 2010Q1

REPORT INFORMATION
  Report Type: 
  Country: None (occurrence: None)
  Receive Date: 20100225
  Receipt Date: 20090424
  Transmission Date: 20100710
  Serious: Yes (Hospitalization)
  Sender: FDA-Public Use
  Company Number: US-JNJFOC-20090500793

PATIENT
  Age: 52 Year
  Sex: Male
  Weight: 90.2658 kg

DRUGS (2)
  1. IBUPROFEN [Suspect]
     Indication: ARTHRITIS
     Dates: end: 20040401
  2. LATANOPROST [Suspect]
     Indication: GLAUCOMA
     Dosage: .005% SOLUTION, 1 DROP IN EACH EYE AT BEDTIME
     Dates: start: 20011201

REACTIONS (1)
  - HYPERTENSION [None]
